FAERS Safety Report 7157618-5 (Version None)
Quarter: 2010Q4

REPORT INFORMATION
  Report Type: 
  Country: None (occurrence: None)
  Receive Date: 20101214
  Receipt Date: 20100617
  Transmission Date: 20110411
  Serious: No
  Sender: FDA-Public Use
  Company Number: US-ASTRAZENECA-2010SE09491

PATIENT
  Age: 26971 Day
  Sex: Male
  Weight: 71.7 kg

DRUGS (1)
  1. CRESTOR [Suspect]
     Route: 048
     Dates: start: 20100302, end: 20100303

REACTIONS (4)
  - BACK PAIN [None]
  - DISCOMFORT [None]
  - HYPERSENSITIVITY [None]
  - MUSCLE SPASMS [None]
